FAERS Safety Report 14755776 (Version 3)
Quarter: 2018Q2

REPORT INFORMATION
  Report Type: Spontaneous
  Country: US (occurrence: US)
  Receive Date: 20180413
  Receipt Date: 20180423
  Transmission Date: 20180711
  Serious: No
  Sender: FDA-Public Use
  Company Number: US-PFIZER INC-2018150028

PATIENT
  Age: 62 Year
  Sex: Female
  Weight: 56.7 kg

DRUGS (1)
  1. ALPRAZOLAM. [Suspect]
     Active Substance: ALPRAZOLAM
     Dosage: 2 MG, 3X/DAY

REACTIONS (5)
  - Pre-existing condition improved [Unknown]
  - Disorientation [Unknown]
  - Therapeutic response unexpected [Unknown]
  - Intentional product misuse [Unknown]
  - Feeling abnormal [Unknown]
